FAERS Safety Report 7714301-2 (Version None)
Quarter: 2011Q3

REPORT INFORMATION
  Report Type: 
  Country: None (occurrence: None)
  Receive Date: 20110829
  Receipt Date: 20110816
  Transmission Date: 20111222
  Serious: No
  Sender: FDA-Public Use
  Company Number: US-BIOGENIDEC-2011BI032166

PATIENT
  Sex: Female
  Weight: 68 kg

DRUGS (2)
  1. MIRENA [Concomitant]
     Indication: PRODUCT USED FOR UNKNOWN INDICATION
  2. TYSABRI [Suspect]
     Indication: RELAPSING-REMITTING MULTIPLE SCLEROSIS
     Route: 042
     Dates: start: 20091012

REACTIONS (23)
  - VITAMIN D DEFICIENCY [None]
  - COORDINATION ABNORMAL [None]
  - ASTHENIA [None]
  - UHTHOFF'S PHENOMENON [None]
  - DECREASED VIBRATORY SENSE [None]
  - THERMOHYPERAESTHESIA [None]
  - STRESS [None]
  - VAGINITIS BACTERIAL [None]
  - PARAESTHESIA [None]
  - PAIN [None]
  - HERPES VIRUS INFECTION [None]
  - MEMORY IMPAIRMENT [None]
  - URINARY TRACT INFECTION [None]
  - HYPOAESTHESIA [None]
  - TREMOR [None]
  - THERMOHYPOAESTHESIA [None]
  - NORMOCHROMIC NORMOCYTIC ANAEMIA [None]
  - WEIGHT DECREASED [None]
  - FATIGUE [None]
  - PAIN IN EXTREMITY [None]
  - TEMPERATURE INTOLERANCE [None]
  - MUSCULAR WEAKNESS [None]
  - MENSTRUATION IRREGULAR [None]
